FAERS Safety Report 5057410-1 (Version None)
Quarter: 2006Q3

REPORT INFORMATION
  Report Type: 
  Country: None (occurrence: None)
  Receive Date: 20060721
  Receipt Date: 20050923
  Transmission Date: 20061208
  Serious: No
  Sender: FDA-Public Use
  Company Number: US-GLAXOSMITHKLINE-A0575720A

PATIENT
  Age: 62 Year
  Sex: Male

DRUGS (10)
  1. AVANDIA [Suspect]
     Dosage: 8MG PER DAY
     Route: 048
     Dates: start: 20050101
  2. GLUCOTROL [Concomitant]
  3. GLUCOPHAGE [Concomitant]
  4. ALTACE [Concomitant]
  5. ZOCOR [Concomitant]
  6. DEMADEX [Concomitant]
  7. ASPIRIN [Concomitant]
  8. NEXIUM [Concomitant]
  9. IRON [Concomitant]
  10. MULTI-VITAMIN [Concomitant]

REACTIONS (2)
  - BLOOD GLUCOSE INCREASED [None]
  - INCREASED APPETITE [None]
